FAERS Safety Report 20375366 (Version 2)
Quarter: 2022Q1

REPORT INFORMATION
  Report Type: Spontaneous
  Country: GR (occurrence: GR)
  Receive Date: 20220125
  Receipt Date: 20220307
  Transmission Date: 20220424
  Serious: No
  Sender: FDA-Public Use
  Company Number: GR-PFIZER INC-202101861287

PATIENT
  Age: 10 Year
  Sex: Female
  Weight: 23 kg

DRUGS (1)
  1. GENOTROPIN [Suspect]
     Active Substance: SOMATROPIN
     Indication: Growth hormone deficiency
     Dosage: 4.8 MG/6DAYS
     Route: 058
     Dates: start: 202111

REACTIONS (3)
  - Drug dose omission by device [Unknown]
  - Device occlusion [Unknown]
  - Device leakage [Unknown]

NARRATIVE: CASE EVENT DATE: 20211226
